FAERS Safety Report 7335571-9 (Version None)
Quarter: 2011Q1

REPORT INFORMATION
  Report Type: 
  Country: None (occurrence: None)
  Receive Date: 20110228
  Receipt Date: 20110228
  Transmission Date: 20110831
  Serious: No
  Sender: FDA-Public Use
  Company Number: None

PATIENT

DRUGS (1)
  1. BENZALKONIUM CHLORIDE SOLUTION [Suspect]

REACTIONS (6)
  - APPLICATION SITE PRURITUS [None]
  - APPLICATION SITE DISCOLOURATION [None]
  - DYSPNOEA [None]
  - RASH [None]
  - APPLICATION SITE BLEEDING [None]
  - APPLICATION SITE RASH [None]
